FAERS Safety Report 9237884 (Version 2)
Quarter: 2013Q2

REPORT INFORMATION
  Report Type: Spontaneous
  Country: IE (occurrence: None)
  Receive Date: 20130415
  Receipt Date: 20130509
  Transmission Date: 20140414
  Serious: Yes (Disabling, Other)
  Sender: FDA-Public Use
  Company Number: 2013-1014

PATIENT
  Age: 47 Year
  Sex: Female
  Weight: 50 kg

DRUGS (1)
  1. DYSPORT [Suspect]
     Indication: MUSCLE SPASTICITY
     Dosage: 1000 UNITS (1000 UNITS, 1 IN 1)CYCLE, INTRAMUSCULAR.
     Route: 030
     Dates: start: 20121219, end: 20121219

REACTIONS (5)
  - Asthenia [None]
  - Influenza like illness [None]
  - Malaise [None]
  - Mobility decreased [None]
  - Product reconstitution issue [None]
